FAERS Safety Report 5130359-1 (Version None)
Quarter: 2006Q4

REPORT INFORMATION
  Report Type: 
  Country: None (occurrence: None)
  Receive Date: 20061013
  Receipt Date: 20061004
  Transmission Date: 20070319
  Serious: Yes (Other)
  Sender: FDA-Public Use
  Company Number: US-2005-021265

PATIENT
  Sex: Female

DRUGS (1)
  1. MIRENA [Suspect]
     Dosage: 20 UG/DAY, CONT, INTRA-UTERINE
     Route: 015

REACTIONS (5)
  - ALOPECIA [None]
  - DEPRESSION [None]
  - DYSMENORRHOEA [None]
  - MENORRHAGIA [None]
  - METRORRHAGIA [None]
